FAERS Safety Report 5131428-2 (Version None)
Quarter: 2006Q4

REPORT INFORMATION
  Report Type: 
  Country: None (occurrence: None)
  Receive Date: 20061020
  Receipt Date: 20061010
  Transmission Date: 20070319
  Serious: Yes (Hospitalization)
  Sender: FDA-Public Use
  Company Number: FR-GLAXOSMITHKLINE-B0442670A

PATIENT
  Age: 37 Year
  Sex: Female

DRUGS (3)
  1. DEROXAT [Suspect]
     Dosage: 10MG PER DAY
     Route: 048
     Dates: end: 20060101
  2. INIPOMP [Suspect]
     Dosage: 20MG PER DAY
     Route: 048
  3. JOSACINE [Suspect]
     Route: 048

REACTIONS (3)
  - ALBUMINURIA [None]
  - DRUG EXPOSURE DURING PREGNANCY [None]
  - OEDEMA [None]
